FAERS Safety Report 6303002-3 (Version None)
Quarter: 2009Q3

REPORT INFORMATION
  Report Type: 
  Country: None (occurrence: None)
  Receive Date: 20090810
  Receipt Date: 20090730
  Transmission Date: 20100115
  Serious: Yes (Other)
  Sender: FDA-Public Use
  Company Number: JP-ASTRAZENECA-2009SE06067

PATIENT
  Sex: Male
  Weight: 80 kg

DRUGS (2)
  1. ECARD [Suspect]
     Indication: HYPERTENSION
     Route: 048
     Dates: start: 20090420, end: 20090716
  2. FAMOTIDINE D [Concomitant]
     Indication: PROPHYLAXIS AGAINST GASTROINTESTINAL ULCER
     Route: 048
     Dates: start: 20090311

REACTIONS (3)
  - LOSS OF CONSCIOUSNESS [None]
  - MUSCLE SPASMS [None]
  - URINARY INCONTINENCE [None]
